FAERS Safety Report 10061612 (Version 1)
Quarter: 2014Q2

REPORT INFORMATION
  Report Type: Spontaneous
  Country: US (occurrence: None)
  Receive Date: 20140403
  Receipt Date: 20140403
  Transmission Date: 20141212
  Serious: Yes (Hospitalization)
  Sender: FDA-Public Use
  Company Number: IPC201403-000141

PATIENT
  Age: 53 Year
  Sex: Male

DRUGS (6)
  1. WARFARIN [Suspect]
     Indication: ANTICOAGULANT THERAPY
     Dosage: 1 MG ON TUE, THUR, SAT AND SUN
  2. AMOXICILLIN/CLAVULANATE [Suspect]
     Indication: TOOTH ABSCESS
  3. ALBUTEROL (ALBUTEROL) [Concomitant]
  4. TRAZODONE (TRAZODONE) [Concomitant]
  5. CHLORDIAZEPOXIDE (CHLORDIAZEPOXIDE) [Concomitant]
  6. VICODIN ES (HYDROCODONE BITARTRATE, ACETAMINOPHEN) (HYDROCODONE BITARTRATE, ACETAMINOPHEN) [Concomitant]

REACTIONS (6)
  - Contusion [None]
  - Haematuria [None]
  - International normalised ratio increased [None]
  - Drug interaction [None]
  - Post procedural haemorrhage [None]
  - Occult blood positive [None]
